FAERS Safety Report 12297877 (Version 3)
Quarter: 2016Q2

REPORT INFORMATION
  Report Type: Report from Study
  Country: US (occurrence: US)
  Receive Date: 20160422
  Receipt Date: 20160623
  Transmission Date: 20160815
  Serious: Yes (Hospitalization)
  Sender: FDA-Public Use
  Company Number: US-PFIZER INC-2016219844

PATIENT
  Age: 10 Year
  Sex: Male
  Weight: 39 kg

DRUGS (6)
  1. LOPERAMIDE [Concomitant]
     Active Substance: LOPERAMIDE
  2. BACTRIM [Concomitant]
     Active Substance: SULFAMETHOXAZOLE\TRIMETHOPRIM
  3. LORAZEPAM. [Concomitant]
     Active Substance: LORAZEPAM
  4. PALBOCICLIB [Suspect]
     Active Substance: PALBOCICLIB
     Indication: BRAIN STEM GLIOMA
     Dosage: 75 MG/M2 IN 100 MG/DAILY UNITS EVERY DAY FOR 21 DAYS
     Dates: start: 20160316
  5. ACETAMINOPHEN. [Concomitant]
     Active Substance: ACETAMINOPHEN
  6. DEXTROSE. [Concomitant]
     Active Substance: DEXTROSE

REACTIONS (8)
  - Urinary retention [Recovering/Resolving]
  - Tumour haemorrhage [Recovering/Resolving]
  - Fatigue [Recovering/Resolving]
  - Ataxia [Recovering/Resolving]
  - Abdominal pain [Recovered/Resolved]
  - Lethargy [Recovered/Resolved]
  - Vomiting [Recovered/Resolved with Sequelae]
  - Nausea [Recovered/Resolved with Sequelae]

NARRATIVE: CASE EVENT DATE: 20160330
